FAERS Safety Report 7072927-6 (Version None)
Quarter: 2010Q4

REPORT INFORMATION
  Report Type: 
  Country: None (occurrence: None)
  Receive Date: 20101029
  Receipt Date: 20100331
  Transmission Date: 20110411
  Serious: No
  Sender: FDA-Public Use
  Company Number: A0852923A

PATIENT
  Age: 48 Year
  Sex: Female

DRUGS (4)
  1. ADVAIR DISKUS 100/50 [Suspect]
     Indication: ASTHMA
     Dosage: 1PUFF TWICE PER DAY
     Route: 055
     Dates: start: 20050101, end: 20080101
  2. ADVAIR DISKUS 100/50 [Suspect]
     Dosage: 1PUFF TWICE PER DAY
     Route: 055
     Dates: start: 20080301, end: 20090301
  3. LIPITOR [Concomitant]
  4. LEVOTHYROXINE SODIUM [Concomitant]

REACTIONS (5)
  - DRUG INEFFECTIVE [None]
  - HEADACHE [None]
  - LOWER RESPIRATORY TRACT INFECTION [None]
  - ORAL INFECTION [None]
  - PRODUCTIVE COUGH [None]
